FAERS Safety Report 25166400 (Version 1)
Quarter: 2025Q2

REPORT INFORMATION
  Report Type: Report from Study
  Country: US (occurrence: US)
  Receive Date: 20250407
  Receipt Date: 20250407
  Transmission Date: 20250716
  Serious: No
  Sender: ACADIA PHARMACEUTICALS
  Company Number: US-ACADIA PHARMACEUTICALS INC.-ACA-2025-PIM-003708

PATIENT
  Age: 76 Year
  Sex: Male

DRUGS (16)
  1. NUPLAZID [Suspect]
     Active Substance: PIMAVANSERIN TARTRATE
     Indication: Hallucination
     Dosage: 34 MILLIGRAM, QD
     Route: 048
     Dates: start: 20250225, end: 202503
  2. RIVASTIGMINE [Concomitant]
     Active Substance: RIVASTIGMINE
  3. ASPIRIN [Concomitant]
     Active Substance: ASPIRIN
  4. BUSPIRONE [Concomitant]
     Active Substance: BUSPIRONE HYDROCHLORIDE
  5. CARBIDOPA\LEVODOPA [Concomitant]
     Active Substance: CARBIDOPA\LEVODOPA
  6. COLACE [Concomitant]
     Active Substance: DOCUSATE SODIUM
  7. DULOXETINE [Concomitant]
     Active Substance: DULOXETINE
  8. DULOXETINE [Concomitant]
     Active Substance: DULOXETINE
  9. LISINOPRIL [Concomitant]
     Active Substance: LISINOPRIL
  10. MIRALAX [Concomitant]
     Active Substance: POLYETHYLENE GLYCOL 3350
  11. NAMENDA [Concomitant]
     Active Substance: MEMANTINE HYDROCHLORIDE
  12. OXYBUTYNIN [Concomitant]
     Active Substance: OXYBUTYNIN
  13. POTASSIUM CHLORIDE [Concomitant]
     Active Substance: POTASSIUM CHLORIDE
  14. MINERALS\VITAMINS [Concomitant]
     Active Substance: MINERALS\VITAMINS
  15. ATORVASTATIN [Concomitant]
     Active Substance: ATORVASTATIN
  16. FUROSEMIDE [Concomitant]
     Active Substance: FUROSEMIDE

REACTIONS (2)
  - Anxiety [Recovered/Resolved]
  - Feeling jittery [Recovered/Resolved]

NARRATIVE: CASE EVENT DATE: 20250201
